FAERS Safety Report 12934956 (Version 1)
Quarter: 2016Q4

REPORT INFORMATION
  Report Type: Spontaneous
  Country: MX (occurrence: MX)
  Receive Date: 20161113
  Receipt Date: 20161113
  Transmission Date: 20170207
  Serious: Yes (Other)
  Sender: FDA-Public Use
  Company Number: PHHY2016MX152959

PATIENT
  Sex: Female

DRUGS (2)
  1. EXFORGE [Suspect]
     Active Substance: AMLODIPINE BESYLATE\VALSARTAN
     Indication: PRODUCT USED FOR UNKNOWN INDICATION
     Dosage: UNK UKN, UNK
     Route: 065
  2. EXFORGE HCT [Suspect]
     Active Substance: AMLODIPINE BESYLATE\HYDROCHLOROTHIAZIDE\VALSARTAN
     Indication: PRODUCT USED FOR UNKNOWN INDICATION
     Dosage: 1 DF, (5 MG AMLODIPINE/160 MG VALSARTAN/  12.5 MG HCT)
     Route: 065

REACTIONS (13)
  - Hypopituitarism [Unknown]
  - Bladder dysfunction [Unknown]
  - Headache [Unknown]
  - Depression [Unknown]
  - Neurodegenerative disorder [Unknown]
  - Cerebral calcification [Unknown]
  - Thyroid calcification [Unknown]
  - Colitis ulcerative [Unknown]
  - Myocardial calcification [Unknown]
  - Anxiety [Unknown]
  - Generalised oedema [Unknown]
  - Urinary incontinence [Unknown]
  - Diarrhoea [Unknown]
